FAERS Safety Report 9515150 (Version 1)
Quarter: 2013Q1

REPORT INFORMATION
  Report Type: Spontaneous
  Country: US (occurrence: None)
  Receive Date: 20130305
  Receipt Date: 20130305
  Transmission Date: 20140127
  Serious: Yes (Other)
  Sender: FDA-Public Use
  Company Number: 163-21880-12121690

PATIENT
  Age: 77 Year
  Sex: Female

DRUGS (7)
  1. REVLIMID [Suspect]
     Indication: PLASMA CELL MYELOMA
     Dosage: 10 MG, 21 IN 21 D, PO
     Route: 048
     Dates: start: 20100709
  2. PERCOCET (OXYCOCET) (UNKNOWN) [Concomitant]
  3. PROCRIT [Concomitant]
  4. COUMADIN (WARFARIN SODIUM) (UNKNOWN) [Concomitant]
  5. METHOCARBAMOL (METHOCARBAMOL) (UNKNOWN) [Concomitant]
  6. ZYMAXID (GATIFLOXACIN) (UNKNOWN) [Concomitant]
  7. BROMDAY (BROMFENAC SODIUM) (UNKNOWN) [Concomitant]

REACTIONS (1)
  - Urinary tract infection [None]
